FAERS Safety Report 24136585 (Version 4)
Quarter: 2024Q3

REPORT INFORMATION
  Report Type: Spontaneous
  Country: US (occurrence: US)
  Receive Date: 20240725
  Receipt Date: 20240902
  Transmission Date: 20241017
  Serious: Yes (Hospitalization, Other)
  Sender: PFIZER
  Company Number: US-PFIZER INC-202400222262

PATIENT
  Age: 69 Year
  Sex: Female
  Weight: 53.52 kg

DRUGS (1)
  1. XELJANZ XR [Suspect]
     Active Substance: TOFACITINIB CITRATE
     Indication: Rheumatoid arthritis
     Dosage: 11 MG, 1X/DAY
     Dates: end: 2023

REACTIONS (10)
  - Cardiac disorder [Recovered/Resolved]
  - Loss of consciousness [Unknown]
  - Rib fracture [Unknown]
  - Fall [Unknown]
  - Condition aggravated [Not Recovered/Not Resolved]
  - Renal disorder [Unknown]
  - Urinary tract infection [Unknown]
  - Spondylitis [Unknown]
  - Muscle spasms [Unknown]
  - Vision blurred [Unknown]

NARRATIVE: CASE EVENT DATE: 20240101
